FAERS Safety Report 14112671 (Version 1)
Quarter: 2017Q4

REPORT INFORMATION
  Report Type: Spontaneous
  Country: US (occurrence: US)
  Receive Date: 20171021
  Receipt Date: 20171021
  Transmission Date: 20180321
  Serious: Yes (Other)
  Sender: FDA-Public Use
  Company Number: US-INSYS THERAPEUTICS, INC-INS201710-000590

PATIENT
  Sex: Male

DRUGS (1)
  1. SUBSYS [Suspect]
     Active Substance: FENTANYL
     Indication: PRODUCT USED FOR UNKNOWN INDICATION
     Route: 060

REACTIONS (8)
  - Insomnia [Unknown]
  - Bladder disorder [Unknown]
  - Cerebral disorder [Unknown]
  - Eye disorder [Unknown]
  - Pain [Unknown]
  - Limb injury [Unknown]
  - Drug withdrawal syndrome [Unknown]
  - Arthritis [Unknown]
